FAERS Safety Report 4672450-X (Version None)
Quarter: 2005Q2

REPORT INFORMATION
  Report Type: 
  Country: None (occurrence: None)
  Receive Date: 20050523
  Receipt Date: 20050510
  Transmission Date: 20051028
  Serious: Yes (Congenital Anomaly)
  Sender: FDA-Public Use
  Company Number: 05-05-0898

PATIENT
  Age: 18 Year
  Sex: Female

DRUGS (1)
  1. FLUOXETINE [Suspect]
     Indication: BULIMIA NERVOSA
     Dosage: 60MG QD

REACTIONS (1)
  - ANENCEPHALY [None]
